FAERS Safety Report 25923605 (Version 2)
Quarter: 2025Q4

REPORT INFORMATION
  Report Type: Spontaneous
  Country: US (occurrence: US)
  Receive Date: 20251015
  Receipt Date: 20251125
  Transmission Date: 20260117
  Serious: Yes (Death, Hospitalization)
  Sender: RADIUS PHARM
  Company Number: US-RADIUS HEALTH INC.-US-RADIUS-25055402

PATIENT
  Sex: Female

DRUGS (1)
  1. TYMLOS [Suspect]
     Active Substance: ABALOPARATIDE
     Indication: Product used for unknown indication
     Dosage: 80 MICROGRAM, QD
     Route: 058

REACTIONS (6)
  - Death [Fatal]
  - Cardiac failure congestive [Unknown]
  - Hypokinesia [Unknown]
  - Sciatica [Recovered/Resolved]
  - Back pain [Recovered/Resolved]
  - Product dose omission issue [Unknown]
